FAERS Safety Report 20646890 (Version 1)
Quarter: 2022Q1

REPORT INFORMATION
  Report Type: Spontaneous
  Country: FR (occurrence: FR)
  Receive Date: 20220329
  Receipt Date: 20220329
  Transmission Date: 20220424
  Serious: Yes (Hospitalization)
  Sender: FDA-Public Use
  Company Number: None

PATIENT
  Age: 23 Year
  Sex: Female
  Weight: 35 kg

DRUGS (8)
  1. SERTRALINE HYDROCHLORIDE [Suspect]
     Active Substance: SERTRALINE HYDROCHLORIDE
     Indication: Anorexia nervosa
     Dosage: 50 MG, QD
     Route: 048
     Dates: start: 20210203, end: 20210219
  2. OLANZAPINE [Suspect]
     Active Substance: OLANZAPINE
     Indication: Anorexia nervosa
     Dosage: 5 MG, QD
     Route: 048
     Dates: start: 20210203, end: 20210219
  3. VITAMINS [Concomitant]
     Active Substance: VITAMINS
     Indication: Malnutrition
     Dosage: 25 DRP, QD
     Route: 048
     Dates: start: 20210203
  4. NIACINAMIDE [Concomitant]
     Active Substance: NIACINAMIDE
     Indication: Malnutrition
     Dosage: 1 DOSAGE FORM, QD
     Route: 048
     Dates: start: 20210203
  5. CALCIDOSE [Concomitant]
     Indication: Malnutrition
     Dosage: 2 DOSAGE FORM, QD
     Route: 048
     Dates: start: 20210203
  6. LOXAPINE [Concomitant]
     Active Substance: LOXAPINE
     Indication: Malnutrition
     Dosage: 10 DRP, QD
     Route: 048
     Dates: start: 20210203
  7. ZINC GLUCONATE [Concomitant]
     Active Substance: ZINC GLUCONATE
     Indication: Malnutrition
     Dosage: 1 DOSAGE FORM, QD
     Route: 048
     Dates: start: 20210203
  8. FOLIC ACID [Concomitant]
     Active Substance: FOLIC ACID
     Indication: Malnutrition
     Dosage: 15 MG, QD
     Route: 048
     Dates: start: 20210203

REACTIONS (1)
  - Hepatic cytolysis [Recovering/Resolving]

NARRATIVE: CASE EVENT DATE: 20210204
